FAERS Safety Report 8890958 (Version 1)
Quarter: 2012Q4

REPORT INFORMATION
  Report Type: 
  Country: CH (occurrence: CH)
  Receive Date: 20121106
  Receipt Date: 20121106
  Transmission Date: 20130627
  Serious: Yes (Other)
  Sender: FDA-Public Use
  Company Number: CH-PFIZER INC-2012273138

PATIENT
  Age: 18 Year
  Sex: Female

DRUGS (3)
  1. DEPO-PROVERA [Suspect]
     Dosage: UNK
     Dates: start: 201110, end: 201110
  2. RUBELLA AND MUMPS VIRUS VACCINE, LIVE [Suspect]
     Dosage: 1 DF, UNK
     Dates: start: 20111006
  3. HEPATITIS B VIRUS VACCINE [Suspect]
     Dates: start: 20111006

REACTIONS (2)
  - Abortion [Recovered/Resolved]
  - Maternal exposure during pregnancy [None]
